FAERS Safety Report 6631767-X (Version None)
Quarter: 2010Q1

REPORT INFORMATION
  Report Type: 
  Country: None (occurrence: None)
  Receive Date: 20100312
  Receipt Date: 20100301
  Transmission Date: 20100710
  Serious: Yes (Other)
  Sender: FDA-Public Use
  Company Number: US-ELI_LILLY_AND_COMPANY-US201003000567

PATIENT
  Sex: Male
  Weight: 71.202 kg

DRUGS (18)
  1. SOMATROPIN [Suspect]
     Indication: HYPOPITUITARISM
     Dosage: 0.5 MG, DAILY (1/D)
     Route: 058
     Dates: start: 20090102
  2. CALTRATE [Concomitant]
  3. MULTI-VITAMIN [Concomitant]
  4. PREDNISONE [Concomitant]
     Dosage: 10 MG, UNK
  5. LEVOTHYROXINE [Concomitant]
     Dosage: 0.75 MG, UNK
  6. PRILOSEC [Concomitant]
  7. ACTOS [Concomitant]
  8. JANUVIA [Concomitant]
  9. METFORMIN [Concomitant]
  10. PRANDIN [Concomitant]
  11. DDAVP [Concomitant]
     Dosage: 0.1 MG, UNK
     Route: 048
  12. FIBERCON [Concomitant]
  13. LANTUS [Concomitant]
  14. TESTOSTERONE [Concomitant]
     Dosage: 8 MG, UNK
     Route: 058
  15. ACIPHEX [Concomitant]
  16. XANAX [Concomitant]
  17. ASPIRIN [Concomitant]
  18. STOOL SOFTENER [Concomitant]

REACTIONS (1)
  - MANTLE CELL LYMPHOMA [None]
